FAERS Safety Report 6204109-1 (Version None)
Quarter: 2009Q2

REPORT INFORMATION
  Report Type: 
  Country: None (occurrence: None)
  Receive Date: 20090527
  Receipt Date: 20051222
  Transmission Date: 20091009
  Serious: Yes (Hospitalization)
  Sender: FDA-Public Use
  Company Number: DE-PFIZER INC-2004243838DE

PATIENT
  Age: 68 Year

DRUGS (4)
  1. CELECOXIB [Suspect]
     Indication: NEOPLASM PROPHYLAXIS
     Dosage: 400 MG, 1X/DAY
     Route: 048
     Dates: start: 20020221, end: 20041031
  2. DILTIAZEM [Concomitant]
     Route: 048
     Dates: start: 19980201
  3. DOBICA [Concomitant]
     Route: 048
     Dates: start: 19660101
  4. SERETIDE MITE [Concomitant]
     Route: 048
     Dates: start: 20030117

REACTIONS (1)
  - LUNG NEOPLASM MALIGNANT [None]
